FAERS Safety Report 14575743 (Version 1)
Quarter: 2018Q1

REPORT INFORMATION
  Report Type: Spontaneous
  Country: AU (occurrence: AU)
  Receive Date: 20180227
  Receipt Date: 20180227
  Transmission Date: 20180509
  Serious: Yes (Disabling)
  Sender: FDA-Public Use
  Company Number: AU-009507513-1802AUS011005

PATIENT
  Age: 45 Year
  Sex: Female
  Weight: 100 kg

DRUGS (3)
  1. LEXAPRO [Suspect]
     Active Substance: ESCITALOPRAM OXALATE
     Dosage: 20 MG, QD
     Dates: start: 20070501, end: 20111201
  2. AVANZA [Suspect]
     Active Substance: MIRTAZAPINE
     Dosage: 15 MG, 1 TIME
     Dates: start: 20070102, end: 20070102
  3. EFEXOR [Suspect]
     Active Substance: VENLAFAXINE HYDROCHLORIDE
     Dosage: 75 MG, QD
     Dates: start: 20070201

REACTIONS (4)
  - Bipolar I disorder [Not Recovered/Not Resolved]
  - Psychotic disorder [Not Recovered/Not Resolved]
  - Major depression [Not Recovered/Not Resolved]
  - Suicidal ideation [Not Recovered/Not Resolved]

NARRATIVE: CASE EVENT DATE: 200701
